FAERS Safety Report 5129319-6 (Version None)
Quarter: 2006Q4

REPORT INFORMATION
  Report Type: 
  Country: None (occurrence: None)
  Receive Date: 20061011
  Receipt Date: 20060920
  Transmission Date: 20070319
  Serious: Yes (Hospitalization)
  Sender: FDA-Public Use
  Company Number: FR_050606698

PATIENT
  Age: 43 Year
  Sex: Male

DRUGS (3)
  1. PROZAC [Suspect]
     Indication: TOBACCO WITHDRAWAL SYMPTOMS
     Dosage: UNK, UNKNOWN, ORAL
     Route: 048
     Dates: end: 20050407
  2. TRAMADOL HCL [Concomitant]
  3. ACUPAN [Concomitant]

REACTIONS (9)
  - ALANINE AMINOTRANSFERASE INCREASED [None]
  - CEREBELLAR SYNDROME [None]
  - CONVULSION [None]
  - DIPLOPIA [None]
  - ELECTROENCEPHALOGRAM ABNORMAL [None]
  - ENCEPHALITIS VIRAL [None]
  - EYE MOVEMENT DISORDER [None]
  - HYPERVENTILATION [None]
  - SOMNOLENCE [None]
